FAERS Safety Report 6506900-0 (Version None)
Quarter: 2009Q4

REPORT INFORMATION
  Report Type: 
  Country: None (occurrence: None)
  Receive Date: 20091221
  Receipt Date: 20091216
  Transmission Date: 20100525
  Serious: Yes (Other)
  Sender: FDA-Public Use
  Company Number: BR-SANOFI-AVENTIS-2009SA009585

PATIENT
  Sex: Male
  Weight: 25.6 kg

DRUGS (3)
  1. LANTUS [Suspect]
     Dosage: MORNING
     Route: 058
     Dates: start: 20070101
  2. OPTIPEN [Suspect]
  3. NOVORAPID [Concomitant]
     Dosage: 8-10 IU
     Route: 058
     Dates: start: 20070101

REACTIONS (2)
  - CONVULSION [None]
  - HEADACHE [None]
